FAERS Safety Report 12530930 (Version 1)
Quarter: 2016Q3

REPORT INFORMATION
  Report Type: Spontaneous
  Country: DE (occurrence: DE)
  Receive Date: 20160706
  Receipt Date: 20160706
  Transmission Date: 20161109
  Serious: Yes (Congenital Anomaly)
  Sender: FDA-Public Use
  Company Number: DE-SA-2016SA120061

PATIENT
  Age: 1 Day
  Sex: Female
  Weight: 2.47 kg

DRUGS (4)
  1. FEXOFENADINE [Suspect]
     Active Substance: FEXOFENADINE\FEXOFENADINE HYDROCHLORIDE
     Route: 064
     Dates: start: 20150525, end: 20150713
  2. IPRATROPIUM BROMIDE/FENOTEROL HYDROBROMIDE [Suspect]
     Active Substance: FENOTEROL HYDROBROMIDE\IPRATROPIUM BROMIDE
     Dosage: 50 MCG PER DAY / 20 MCG PER DAY ON DEMAND FOR EMERGENCY REASONS
     Route: 064
     Dates: start: 20150525, end: 20160227
  3. NASONEX [Suspect]
     Active Substance: MOMETASONE FUROATE
     Route: 064
     Dates: start: 20150525, end: 20160227
  4. ALVESCO [Suspect]
     Active Substance: CICLESONIDE
     Route: 064
     Dates: start: 20150525, end: 20160227

REACTIONS (3)
  - Fallot^s tetralogy [Not Recovered/Not Resolved]
  - Exposure during pregnancy [None]
  - Small for dates baby [Not Recovered/Not Resolved]

NARRATIVE: CASE EVENT DATE: 20160227
